FAERS Safety Report 8609534-7 (Version None)
Quarter: 2012Q3

REPORT INFORMATION
  Report Type: 
  Country: None (occurrence: None)
  Receive Date: 20120810
  Receipt Date: 20120810
  Transmission Date: 20120928
  Serious: Yes (Hospitalization)
  Sender: FDA-Public Use
  Company Number: None

PATIENT
  Sex: Male
  Weight: 74.8435 kg

DRUGS (2)
  1. MULTIPLE VITAMIN [Suspect]
  2. MULTIPLE VITAMIN [Suspect]

REACTIONS (3)
  - ARTHRITIS [None]
  - FEELING COLD [None]
  - CONDITION AGGRAVATED [None]
